FAERS Safety Report 9348527 (Version 1)
Quarter: 2013Q2

REPORT INFORMATION
  Report Type: Spontaneous
  Country: US (occurrence: None)
  Receive Date: 20130613
  Receipt Date: 20130613
  Transmission Date: 20140414
  Serious: Yes (Disabling)
  Sender: FDA-Public Use
  Company Number: None

PATIENT
  Sex: Female
  Weight: 97.98 kg

DRUGS (1)
  1. ALENDRONATE SODIUM [Suspect]
     Indication: OSTEOPENIA
     Route: 048
     Dates: start: 2001, end: 201109

REACTIONS (9)
  - Bone pain [None]
  - Arthralgia [None]
  - Pain in jaw [None]
  - Pain [None]
  - Tooth abscess [None]
  - Sensation of heaviness [None]
  - Pain in extremity [None]
  - Arthralgia [None]
  - Pain in extremity [None]
